FAERS Safety Report 25009034 (Version 1)
Quarter: 2025Q1

REPORT INFORMATION
  Report Type: Spontaneous
  Country: US (occurrence: None)
  Receive Date: 20250224
  Receipt Date: 20250224
  Transmission Date: 20250409
  Serious: Yes (Death)
  Sender: FDA-CTU
  Company Number: None

PATIENT
  Age: 64 Year
  Sex: Male

DRUGS (1)
  1. APIXABAN [Suspect]
     Active Substance: APIXABAN

REACTIONS (4)
  - Gastrointestinal haemorrhage [None]
  - Embolic cerebral infarction [None]
  - Respiratory failure [None]
  - Neoplasm malignant [None]

NARRATIVE: CASE EVENT DATE: 20231229
